FAERS Safety Report 8389634-X (Version None)
Quarter: 2012Q2

REPORT INFORMATION
  Report Type: 
  Country: None (occurrence: None)
  Receive Date: 20120528
  Receipt Date: 20120517
  Transmission Date: 20120825
  Serious: Yes (Other)
  Sender: FDA-Public Use
  Company Number: US-ROCHE-1069964

PATIENT
  Sex: Male

DRUGS (2)
  1. NAPROSYN [Suspect]
     Indication: PRODUCT USED FOR UNKNOWN INDICATION
     Dates: start: 20080101
  2. LYRICA [Suspect]
     Indication: BACK PAIN
     Dates: start: 20080101

REACTIONS (5)
  - RENAL DISORDER [None]
  - BLOOD CREATININE INCREASED [None]
  - GLOMERULAR FILTRATION RATE ABNORMAL [None]
  - URINE ABNORMALITY [None]
  - ILL-DEFINED DISORDER [None]
